FAERS Safety Report 6655939-3 (Version None)
Quarter: 2010Q1

REPORT INFORMATION
  Report Type: 
  Country: None (occurrence: None)
  Receive Date: 20100329
  Receipt Date: 20100319
  Transmission Date: 20100710
  Serious: Yes (Hospitalization)
  Sender: FDA-Public Use
  Company Number: PHEH2010US03287

PATIENT
  Sex: Female
  Weight: 53.515 kg

DRUGS (2)
  1. RECLAST [Suspect]
     Indication: OSTEOPOROSIS
     Route: 042
     Dates: start: 20100224
  2. WELLBUTRIN [Concomitant]

REACTIONS (6)
  - ARTHRALGIA [None]
  - EYE PAIN [None]
  - EYELID PTOSIS [None]
  - HEADACHE [None]
  - PAIN [None]
  - RED BLOOD CELL SEDIMENTATION RATE INCREASED [None]
